FAERS Safety Report 17746128 (Version 1)
Quarter: 2020Q2

REPORT INFORMATION
  Report Type: Spontaneous
  Country: PT (occurrence: PT)
  Receive Date: 20200505
  Receipt Date: 20200505
  Transmission Date: 20200714
  Serious: Yes (Other)
  Sender: FDA-Public Use
  Company Number: PT-MYLANLABS-2020M1043168

PATIENT
  Age: 74 Year
  Sex: Female

DRUGS (9)
  1. SULFAMETHOXAZOLE AND TRIMETHOPRIM [Concomitant]
     Active Substance: SULFAMETHOXAZOLE\TRIMETHOPRIM
     Dosage: 1600 MILLIGRAM, QD (800 MG, BID)
     Route: 065
  2. CEFTRIAXONE. [Suspect]
     Active Substance: CEFTRIAXONE
     Indication: DISEASE RECURRENCE
  3. FUROSEMIDE. [Suspect]
     Active Substance: FUROSEMIDE
     Indication: PRODUCT USED FOR UNKNOWN INDICATION
     Dosage: 40 MILLIGRAM, QD (40 MG, QD)
     Route: 065
  4. HYDROXYCHLOROQUINE [Concomitant]
     Active Substance: HYDROXYCHLOROQUINE
     Indication: DISEASE RECURRENCE
     Dosage: 600 MILLIGRAM, QD (200 MG (THREE TIMES A DAY FOR A YEAR))
     Route: 065
  5. OMEPRAZOLE. [Suspect]
     Active Substance: OMEPRAZOLE
     Indication: PRODUCT USED FOR UNKNOWN INDICATION
     Dosage: 20 MILLIGRAM, QD (20 MG, QD)
     Route: 065
  6. SULFAMETHOXAZOLE AND TRIMETHOPRIM [Concomitant]
     Active Substance: SULFAMETHOXAZOLE\TRIMETHOPRIM
     Indication: WHIPPLE^S DISEASE
     Dosage: 320 MILLIGRAM, QD (160 MG, BID)
     Route: 065
  7. DOXYCYCLINE. [Concomitant]
     Active Substance: DOXYCYCLINE
     Indication: DISEASE RECURRENCE
     Dosage: 200 MILLIGRAM, QD (100 MG, BID)
     Route: 065
  8. LORAZEPAM. [Concomitant]
     Active Substance: LORAZEPAM
     Indication: PRODUCT USED FOR UNKNOWN INDICATION
     Dosage: 1 MILLIGRAM, QD (1 MG, QD)
     Route: 065
  9. CEFTRIAXONE. [Suspect]
     Active Substance: CEFTRIAXONE
     Indication: WHIPPLE^S DISEASE
     Dosage: 2 GRAM (2 G (DAILY FOR 2 WEEKS, TWICE A DAY FOR 4 WEEKS)
     Route: 042

REACTIONS (15)
  - Weight decreased [Recovering/Resolving]
  - Protein total decreased [Recovered/Resolved]
  - Leukocytosis [Recovered/Resolved]
  - Hypochromic anaemia [Recovered/Resolved]
  - Pallor [Unknown]
  - Oedema [Unknown]
  - Anaemia [Recovered/Resolved]
  - Asthenia [Unknown]
  - Whipple^s disease [Unknown]
  - Abdominal pain [Unknown]
  - Retroperitoneal lymphadenopathy [Unknown]
  - Dyspnoea [Unknown]
  - Arthralgia [Unknown]
  - Diarrhoea [Recovered/Resolved]
  - Vomiting [Unknown]
